FAERS Safety Report 16243073 (Version 1)
Quarter: 2019Q2

REPORT INFORMATION
  Report Type: Spontaneous
  Country: US (occurrence: US)
  Receive Date: 20190425
  Receipt Date: 20190425
  Transmission Date: 20190711
  Serious: Yes (Death)
  Sender: FDA-Public Use
  Company Number: None

PATIENT
  Age: 71 Year
  Sex: Male
  Weight: 87.6 kg

DRUGS (2)
  1. ATORVASTATIN [Concomitant]
     Active Substance: ATORVASTATIN
     Dates: start: 20131120
  2. ATOVAQUONE ORAL SUSPENSION [Suspect]
     Active Substance: ATOVAQUONE
     Indication: PNEUMONITIS
     Route: 048
     Dates: start: 20181115, end: 20190117

REACTIONS (7)
  - Respiratory distress [None]
  - Pneumonitis [None]
  - Acute hepatic failure [None]
  - Multiple organ dysfunction syndrome [None]
  - Hepatitis [None]
  - Cholecystitis [None]
  - Hypotension [None]

NARRATIVE: CASE EVENT DATE: 20190117
